FAERS Safety Report 6414068-4 (Version None)
Quarter: 2009Q4

REPORT INFORMATION
  Report Type: 
  Country: None (occurrence: None)
  Receive Date: 20091022
  Receipt Date: 20091022
  Transmission Date: 20100525
  Serious: Yes (Other)
  Sender: FDA-Public Use
  Company Number: None

PATIENT
  Age: 1 Day
  Sex: Male

DRUGS (1)
  1. GENTAK [Suspect]
     Indication: OPHTHALMIA NEONATORUM
     Dosage: 1 RIBBON BOTH EYES X1 OPHTHALMIC  1 DOSE
     Route: 047
     Dates: start: 20091009, end: 20091009

REACTIONS (3)
  - APPLICATION SITE DERMATITIS [None]
  - APPLICATION SITE EROSION [None]
  - PERIORBITAL DISORDER [None]
